FAERS Safety Report 9508584 (Version 1)
Quarter: 2013Q3

REPORT INFORMATION
  Report Type: Spontaneous
  Country: KR (occurrence: KR)
  Receive Date: 20130909
  Receipt Date: 20130909
  Transmission Date: 20140515
  Serious: Yes (Other)
  Sender: FDA-Public Use
  Company Number: KR-BAYER-2013-105368

PATIENT
  Age: 68 Year
  Sex: Male

DRUGS (8)
  1. NEXAVAR [Suspect]
     Indication: HEPATIC CANCER METASTATIC
     Dosage: DAILY DOSE 800 MG
     Route: 048
     Dates: start: 20111028, end: 2012
  2. NEXAVAR [Suspect]
     Indication: METASTASES TO SPINE
     Dosage: DAILY DOSE 400 MG
     Dates: start: 2012, end: 201308
  3. CISPLATIN [Suspect]
     Indication: HEPATIC CANCER METASTATIC
     Dosage: 75MG/M2 , 3 TIMES EVERY FOUR WEEKS
     Dates: start: 201203, end: 201302
  4. CISPLATIN [Suspect]
     Indication: METASTASES TO SPINE
  5. ADRIAMYCIN [Suspect]
     Indication: HEPATIC CANCER METASTATIC
     Dosage: 50MG/M2, THREE TIMES EVERY 4 WEEKS
     Dates: start: 201203, end: 201207
  6. ADRIAMYCIN [Suspect]
     Indication: METASTASES TO SPINE
  7. 5-FU [Suspect]
     Indication: HEPATIC CANCER METASTATIC
     Dosage: 800 MG/M2 4 TIMES
     Dates: start: 201207, end: 201302
  8. 5-FU [Suspect]
     Indication: METASTASES TO SPINE

REACTIONS (4)
  - Hepatocellular carcinoma [None]
  - Bone marrow failure [None]
  - Renal impairment [None]
  - Leukopenia [None]
